FAERS Safety Report 19555992 (Version 4)
Quarter: 2021Q3

REPORT INFORMATION
  Report Type: Spontaneous
  Country: FR (occurrence: FR)
  Receive Date: 20210716
  Receipt Date: 20210820
  Transmission Date: 20211014
  Serious: No
  Sender: FDA-Public Use
  Company Number: FR-JNJFOC-20200215435

PATIENT
  Age: 81 Year
  Sex: Female

DRUGS (14)
  1. DUROGESIC [Suspect]
     Active Substance: FENTANYL
  2. DUROGESIC [Suspect]
     Active Substance: FENTANYL
  3. RIVOTRIL [Concomitant]
     Active Substance: CLONAZEPAM
     Indication: PRODUCT USED FOR UNKNOWN INDICATION
     Dosage: 10 DROPS
     Route: 065
  4. DUROGESIC [Suspect]
     Active Substance: FENTANYL
  5. DUROGESIC [Suspect]
     Active Substance: FENTANYL
     Indication: NEUROPATHY PERIPHERAL
     Dosage: STRENGTH: 12.00 MCG/HR
     Route: 062
  6. DUROGESIC [Suspect]
     Active Substance: FENTANYL
  7. SIFROL [Concomitant]
     Active Substance: PRAMIPEXOLE
     Indication: PRODUCT USED FOR UNKNOWN INDICATION
     Dosage: 1 YEAR AND HALF, 1 TAB IN EVENING
     Route: 065
  8. DUROGESIC [Suspect]
     Active Substance: FENTANYL
  9. DOLIPRANE [Concomitant]
     Active Substance: ACETAMINOPHEN
     Indication: PRODUCT USED FOR UNKNOWN INDICATION
     Dosage: 1 YEAR AND HALF
     Route: 065
  10. DUROGESIC [Suspect]
     Active Substance: FENTANYL
     Indication: NEUROPATHY PERIPHERAL
     Dosage: STRENGTH: 12.00 MCG/HR
     Route: 062
  11. DUROGESIC [Suspect]
     Active Substance: FENTANYL
  12. DUROGESIC [Suspect]
     Active Substance: FENTANYL
  13. DUROGESIC [Suspect]
     Active Substance: FENTANYL
  14. TAREC [Concomitant]
     Indication: PRODUCT USED FOR UNKNOWN INDICATION
     Dosage: 1 MORNING 30  YEARS
     Route: 065
     Dates: start: 1987

REACTIONS (6)
  - Wrong technique in product usage process [Unknown]
  - Product administration error [Unknown]
  - Poor quality sleep [Unknown]
  - Off label use [Unknown]
  - Product packaging issue [Unknown]
  - Product dose omission issue [Unknown]
